FAERS Safety Report 19730062 (Version 1)
Quarter: 2021Q3

REPORT INFORMATION
  Report Type: Spontaneous
  Country: US (occurrence: US)
  Receive Date: 20210820
  Receipt Date: 20210820
  Transmission Date: 20211014
  Serious: No
  Sender: FDA-Public Use
  Company Number: US-ARBOR PHARMACEUTICALS, LLC-US-2019ARB000855

PATIENT
  Age: 9 Year
  Sex: Female

DRUGS (5)
  1. TRIPTODUR [Suspect]
     Active Substance: TRIPTORELIN
  2. TRIPTODUR [Suspect]
     Active Substance: TRIPTORELIN
     Dosage: UNK, SINGLE (MAINTENANCE DOSE)
     Route: 030
     Dates: start: 20201026, end: 20201026
  3. TRIPTODUR [Suspect]
     Active Substance: TRIPTORELIN
     Dosage: UNK, SINGLE
     Route: 030
     Dates: start: 20201026, end: 20201026
  4. TRIPTODUR [Suspect]
     Active Substance: TRIPTORELIN
  5. TRIPTODUR [Suspect]
     Active Substance: TRIPTORELIN
     Indication: PRODUCT USED FOR UNKNOWN INDICATION
     Dosage: UNK, SINGLE
     Route: 030
     Dates: start: 20190313, end: 20190313

REACTIONS (9)
  - Dizziness [Unknown]
  - Injection site pain [Unknown]
  - Headache [Unknown]
  - Growth retardation [Unknown]
  - Vomiting [Unknown]
  - Inappropriate schedule of product administration [Unknown]
  - Breast enlargement [Unknown]
  - Nausea [Unknown]
  - Cough [Unknown]

NARRATIVE: CASE EVENT DATE: 20190313
